FAERS Safety Report 20991204 (Version 2)
Quarter: 2022Q3

REPORT INFORMATION
  Report Type: Spontaneous
  Country: GR (occurrence: GR)
  Receive Date: 20220622
  Receipt Date: 20220628
  Transmission Date: 20221026
  Serious: Yes (Hospitalization)
  Sender: FDA-Public Use
  Company Number: GR-NOVARTISPH-NVSC2022GR141598

PATIENT
  Age: 74 Year
  Sex: Male
  Weight: 67 kg

DRUGS (5)
  1. DEXAMETHASONE [Suspect]
     Active Substance: DEXAMETHASONE
     Indication: Plasma cell leukaemia
     Dosage: 80 DOSAGE FORM, QW, (40 MG, 2 X A WEEK)
     Route: 048
     Dates: start: 20220519, end: 20220530
  2. BORTEZOMIB [Suspect]
     Active Substance: BORTEZOMIB
     Indication: Plasma cell leukaemia
     Dosage: 2.6 DOSAGE FORM, QW, (1.3 MG/M2, 2 X A WEEK)
     Route: 058
     Dates: start: 20220519, end: 20220530
  3. DOXORUBICIN HYDROCHLORIDE [Suspect]
     Active Substance: DOXORUBICIN HYDROCHLORIDE
     Indication: Plasma cell leukaemia
     Dosage: 30 DOSAGE FORM, (30 MG/M2, EVERY 6 WK)
     Route: 042
     Dates: start: 20220523, end: 20220523
  4. DARATUMUMAB [Suspect]
     Active Substance: DARATUMUMAB
     Indication: Plasma cell leukaemia
     Dosage: 1800 DOSAGE FORM, QW, (1800 MG, 1X A WEEK)
     Route: 058
     Dates: start: 20220519, end: 20220527
  5. CYCLOPHOSPHAMIDE [Suspect]
     Active Substance: CYCLOPHOSPHAMIDE
     Indication: Plasma cell leukaemia
     Dosage: UNK, (MG/M2)
     Route: 048

REACTIONS (1)
  - Platelet count decreased [Not Recovered/Not Resolved]

NARRATIVE: CASE EVENT DATE: 20220603
